FAERS Safety Report 5463496-2 (Version None)
Quarter: 2007Q3

REPORT INFORMATION
  Report Type: 
  Country: None (occurrence: None)
  Receive Date: 20070920
  Receipt Date: 20070911
  Transmission Date: 20080115
  Serious: Yes (Other)
  Sender: FDA-Public Use
  Company Number: CN-PFIZER INC-2007073797

PATIENT
  Age: 77 Year
  Sex: Female

DRUGS (3)
  1. CAMPTOSAR [Suspect]
     Indication: NEOPLASM MALIGNANT
     Route: 042
     Dates: start: 20070815, end: 20070815
  2. CAMPTOSAR [Suspect]
     Dosage: DAILY DOSE:100MG
     Route: 042
     Dates: start: 20070822, end: 20070822
  3. CAMPTOSAR [Suspect]
     Dosage: DAILY DOSE:100MG
     Route: 042

REACTIONS (3)
  - CEREBRAL INFARCTION [None]
  - DIARRHOEA [None]
  - SKIN DISORDER [None]
